FAERS Safety Report 6150078-2 (Version None)
Quarter: 2009Q2

REPORT INFORMATION
  Report Type: 
  Country: None (occurrence: None)
  Receive Date: 20090407
  Receipt Date: 20090407
  Transmission Date: 20091009
  Serious: Yes (Death)
  Sender: FDA-Public Use
  Company Number: None

PATIENT
  Age: 81 Year
  Sex: Male
  Weight: 99 kg

DRUGS (1)
  1. LENALIDOMIDE 15 MG CAPSULE CELGENE [Suspect]
     Indication: MULTIPLE MYELOMA
     Dosage: 15 MG DAILY X 21 DAYS ORAL
     Route: 048
     Dates: start: 20081002, end: 20081022

REACTIONS (2)
  - MALIGNANT NEOPLASM PROGRESSION [None]
  - MULTIPLE MYELOMA [None]
